FAERS Safety Report 24747427 (Version 4)
Quarter: 2025Q1

REPORT INFORMATION
  Report Type: Spontaneous
  Country: US (occurrence: US)
  Receive Date: 20241218
  Receipt Date: 20250108
  Transmission Date: 20250408
  Serious: Yes (Hospitalization)
  Sender: ROCHE
  Company Number: US-ROCHE-10000158585

PATIENT
  Age: 71 Year
  Sex: Male
  Weight: 112.5 kg

DRUGS (19)
  1. EVRYSDI [Suspect]
     Active Substance: RISDIPLAM
     Indication: Spinal muscular atrophy
     Route: 048
     Dates: start: 20231224, end: 20241213
  2. CHOLECALCIFEROL [Concomitant]
     Active Substance: CHOLECALCIFEROL
     Route: 048
  3. CICLOPIROX [Concomitant]
     Active Substance: CICLOPIROX
     Route: 061
  4. DULAGLUTIDE [Concomitant]
     Active Substance: DULAGLUTIDE
  5. FAMOTIDINE [Concomitant]
     Active Substance: FAMOTIDINE
     Route: 048
  6. FEXOFENADINE [Concomitant]
     Active Substance: FEXOFENADINE HYDROCHLORIDE
     Route: 048
  7. FLUTICASONE PROPIONATE [Concomitant]
     Active Substance: FLUTICASONE PROPIONATE
     Route: 045
  8. GUAIFENESIN [Concomitant]
     Active Substance: GUAIFENESIN
     Route: 048
  9. LORAZEPAM [Concomitant]
     Active Substance: LORAZEPAM
     Route: 048
  10. METRONIDAZOLE [Concomitant]
     Active Substance: METRONIDAZOLE
     Route: 048
  11. MORPHINE [Concomitant]
     Active Substance: MORPHINE
     Route: 042
  12. OFLOXACIN [Concomitant]
     Active Substance: OFLOXACIN
  13. PIMECROLIMUS [Concomitant]
     Active Substance: PIMECROLIMUS
     Route: 061
  14. PSEUDOEPHEDRINE [Concomitant]
     Active Substance: PSEUDOEPHEDRINE
     Route: 048
  15. SULFAMETHOXAZOLE\TRIMETHOPRIM [Concomitant]
     Active Substance: SULFAMETHOXAZOLE\TRIMETHOPRIM
     Route: 048
  16. TESTOSTERONE [Concomitant]
     Active Substance: TESTOSTERONE
     Route: 061
  17. TRIAMCINOLONE [Concomitant]
     Active Substance: TRIAMCINOLONE
     Route: 061
  18. POLYETHYLENE GLYCOL 3350 [Concomitant]
     Active Substance: POLYETHYLENE GLYCOL 3350
     Route: 048
  19. RISDIPLAM [Concomitant]
     Active Substance: RISDIPLAM
     Route: 048

REACTIONS (4)
  - Gallbladder disorder [Recovered/Resolved]
  - Urinary tract infection [Recovered/Resolved]
  - Hypogonadism [Unknown]
  - Seborrhoeic dermatitis [Unknown]

NARRATIVE: CASE EVENT DATE: 20241211
